FAERS Safety Report 7627756-9 (Version None)
Quarter: 2011Q3

REPORT INFORMATION
  Report Type: 
  Country: None (occurrence: None)
  Receive Date: 20110721
  Receipt Date: 20110718
  Transmission Date: 20111222
  Serious: Yes (Other)
  Sender: FDA-Public Use
  Company Number: US-B.I. PHARMACEUTICALS,INC./RIDGEFIELD-2011-BP-17870BP

PATIENT
  Age: 84 Year
  Sex: Male
  Weight: 77 kg

DRUGS (7)
  1. CARVEDILOL [Concomitant]
     Dosage: 6.25 UNK
  2. LISINOPRIL [Concomitant]
     Indication: HYPERTENSION
     Dosage: 5 MG
  3. TIKOSYN [Suspect]
     Indication: ATRIAL FIBRILLATION
     Dosage: 1000 MCG
     Route: 048
     Dates: start: 20110501
  4. POTASSIUM CHLORIDE [Concomitant]
     Dosage: 10 MEQ
  5. LASIX [Concomitant]
     Dosage: 40 MG
  6. MAGNESIUM OXIDE [Concomitant]
     Dosage: 800 MG
  7. PRADAXA [Suspect]
     Indication: ANTICOAGULANT THERAPY
     Dosage: 300 MG
     Dates: start: 20101101

REACTIONS (1)
  - BACK PAIN [None]
